FAERS Safety Report 16828378 (Version 1)
Quarter: 2019Q3

REPORT INFORMATION
  Report Type: Spontaneous
  Country: US (occurrence: US)
  Receive Date: 20190919
  Receipt Date: 20190919
  Transmission Date: 20191005
  Serious: No
  Sender: FDA-Public Use
  Company Number: US-SA-2019SA256998

PATIENT

DRUGS (2)
  1. PRALUENT [Suspect]
     Active Substance: ALIROCUMAB
     Dosage: 75, UNK
  2. PRALUENT [Suspect]
     Active Substance: ALIROCUMAB
     Dosage: 150, UNK
     Dates: start: 20190425

REACTIONS (4)
  - Nausea [Unknown]
  - Vomiting [Unknown]
  - Dry skin [Unknown]
  - Rash macular [Unknown]

NARRATIVE: CASE EVENT DATE: 2019
